FAERS Safety Report 17225255 (Version 1)
Quarter: 2019Q4

REPORT INFORMATION
  Report Type: Spontaneous
  Country: US (occurrence: US)
  Receive Date: 20191210
  Receipt Date: 20191210
  Transmission Date: 20200122
  Serious: Yes (Other)
  Sender: FDA-Public Use
  Company Number: None

PATIENT
  Age: 11 Year
  Sex: Male
  Weight: 44.91 kg

DRUGS (1)
  1. ?GUANFACINE 3MG/SHIRE PHARM [Suspect]
     Active Substance: GUANFACINE
     Indication: ATTENTION DEFICIT/HYPERACTIVITY DISORDER
     Dates: start: 201903

REACTIONS (7)
  - Vision blurred [None]
  - Sedation [None]
  - Hypotension [None]
  - Headache [None]
  - Nausea [None]
  - Bradycardia [None]
  - Dizziness [None]

NARRATIVE: CASE EVENT DATE: 20191101
